FAERS Safety Report 26027258 (Version 1)
Quarter: 2025Q4

REPORT INFORMATION
  Report Type: Spontaneous
  Country: US (occurrence: US)
  Receive Date: 20251111
  Receipt Date: 20251111
  Transmission Date: 20260118
  Serious: No
  Sender: ABBVIE
  Company Number: US-ABBVIE-6538864

PATIENT
  Age: 24 Year
  Sex: Female

DRUGS (1)
  1. LILETTA [Suspect]
     Active Substance: LEVONORGESTREL
     Indication: Product used for unknown indication
     Dosage: TIME INTERVAL: AS NECESSARY: FAILED INSERTION ATTEMPTED ON 30 OCT 2025
     Route: 015

REACTIONS (2)
  - Uterine cervix stenosis [Unknown]
  - Discomfort [Unknown]

NARRATIVE: CASE EVENT DATE: 20251030
